FAERS Safety Report 15220990 (Version 1)
Quarter: 2018Q3

REPORT INFORMATION
  Report Type: Report from Study
  Country: US (occurrence: US)
  Receive Date: 20180731
  Receipt Date: 20180731
  Transmission Date: 20181010
  Serious: Yes (Hospitalization)
  Sender: FDA-Public Use
  Company Number: PHEH2018US030679

PATIENT
  Sex: Female
  Weight: 25 kg

DRUGS (1)
  1. ILARIS [Suspect]
     Active Substance: CANAKINUMAB
     Indication: PYREXIA
     Dosage: 37.5 MG, QMO
     Route: 058

REACTIONS (3)
  - Gastroenteritis [Unknown]
  - Abdominal pain [Unknown]
  - Eating disorder [Unknown]
